FAERS Safety Report 10992811 (Version 2)
Quarter: 2015Q2

REPORT INFORMATION
  Report Type: Spontaneous
  Country: US (occurrence: US)
  Receive Date: 20150406
  Receipt Date: 20150525
  Transmission Date: 20150821
  Serious: No
  Sender: FDA-Public Use
  Company Number: US-JNJFOC-20130103119

PATIENT
  Sex: Male

DRUGS (2)
  1. REMICADE [Suspect]
     Active Substance: INFLIXIMAB
     Indication: PRODUCT USED FOR UNKNOWN INDICATION
     Dosage: IN AUG (YEAR NOT SPECIFIED)
     Route: 042
  2. REMICADE [Suspect]
     Active Substance: INFLIXIMAB
     Indication: PRODUCT USED FOR UNKNOWN INDICATION
     Dosage: 07-NOV (YEAR NOT SPECIFIED)
     Route: 042

REACTIONS (4)
  - Flushing [Unknown]
  - Rash erythematous [Unknown]
  - Dizziness [Unknown]
  - Infusion related reaction [Unknown]
